FAERS Safety Report 20698881 (Version 1)
Quarter: 2022Q2

REPORT INFORMATION
  Report Type: Spontaneous
  Country: US (occurrence: US)
  Receive Date: 20220412
  Receipt Date: 20220412
  Transmission Date: 20220721
  Serious: Yes (Other)
  Sender: FDA-Public Use
  Company Number: US-ALKEM LABORATORIES LIMITED-US-ALKEM-2022-03183

PATIENT
  Age: 53 Year
  Sex: Female

DRUGS (6)
  1. PREGABALIN [Suspect]
     Active Substance: PREGABALIN
     Indication: Seizure
     Dosage: 150 MG/DAY IN THREE DIVIDED DOSES
     Route: 065
  2. PREGABALIN [Suspect]
     Active Substance: PREGABALIN
     Dosage: MAXIMUM TOLERATED DOSE OF 300 MG DAILY IN THREE DIVIDED DOSES
     Route: 065
  3. LAMOTRIGINE [Suspect]
     Active Substance: LAMOTRIGINE
     Indication: Seizure
     Dosage: 700 MG IN THREE DIVIDED DOSES
     Route: 065
  4. LAMOTRIGINE [Suspect]
     Active Substance: LAMOTRIGINE
     Dosage: 600 MG DAILY
     Route: 065
  5. OXCARBAZEPINE [Suspect]
     Active Substance: OXCARBAZEPINE
     Indication: Seizure
     Dosage: 1200 MG DAILY IN TWO DIVIDED DOSES
     Route: 065
  6. OXCARBAZEPINE [Suspect]
     Active Substance: OXCARBAZEPINE
     Dosage: 900 MG DAILY
     Route: 065

REACTIONS (13)
  - Focal dyscognitive seizures [Recovering/Resolving]
  - Depressed level of consciousness [Unknown]
  - Generalised tonic-clonic seizure [Recovered/Resolved]
  - Drug ineffective [Unknown]
  - Toxicity to various agents [Unknown]
  - Nausea [Unknown]
  - Vomiting [Unknown]
  - Atonic seizures [Recovered/Resolved]
  - Cognitive disorder [Unknown]
  - Aphasia [Unknown]
  - Urinary incontinence [Unknown]
  - Anal incontinence [Unknown]
  - Ataxia [Recovering/Resolving]
